FAERS Safety Report 13320186 (Version 1)
Quarter: 2017Q1

REPORT INFORMATION
  Report Type: Spontaneous
  Country: AU (occurrence: AU)
  Receive Date: 20170310
  Receipt Date: 20170310
  Transmission Date: 20170428
  Serious: Yes (Other)
  Sender: FDA-Public Use
  Company Number: AU-009507513-0308AUS00102

PATIENT
  Age: 68 Year
  Sex: Female

DRUGS (6)
  1. VERAPAMIL [Interacting]
     Active Substance: VERAPAMIL HYDROCHLORIDE
  2. GEMFIBROZIL. [Interacting]
     Active Substance: GEMFIBROZIL
  3. SIMVASTATIN. [Suspect]
     Active Substance: SIMVASTATIN
     Dosage: 40 MG, QD
     Route: 048
  4. AMIODARONE [Interacting]
     Active Substance: AMIODARONE
  5. DOTHIEPIN HYDROCHLORIDE [Interacting]
     Active Substance: DOTHIEPIN HYDROCHLORIDE
  6. CERIVASTATIN [Interacting]
     Active Substance: CERIVASTATIN

REACTIONS (3)
  - Labelled drug-drug interaction medication error [Unknown]
  - Rhabdomyolysis [Recovered/Resolved]
  - Myopathy [Recovered/Resolved]
